FAERS Safety Report 9915732 (Version 2)
Quarter: 2014Q2

REPORT INFORMATION
  Report Type: Spontaneous
  Country: GB (occurrence: None)
  Receive Date: 20140218
  Receipt Date: 20140512
  Transmission Date: 20141212
  Serious: Yes (Hospitalization)
  Sender: FDA-Public Use
  Company Number: NGX_02253_2014

PATIENT
  Age: 78 Year
  Sex: Female

DRUGS (9)
  1. QUTENZA [Suspect]
     Indication: PRODUCT USED FOR UNKNOWN INDICATION
     Route: 061
     Dates: start: 201401, end: 201401
  2. ASPIRIN [Concomitant]
  3. CLENIL MODULITE [Concomitant]
  4. CO-CODAMOL [Concomitant]
  5. FERROUS FUMARATE [Concomitant]
  6. OMEPRAZOLE [Concomitant]
  7. RAMIPRIL [Concomitant]
  8. SALBUTAMOL [Concomitant]
  9. SIMVASTATIN [Concomitant]

REACTIONS (1)
  - Asthma [None]
